FAERS Safety Report 16303312 (Version 1)
Quarter: 2019Q2

REPORT INFORMATION
  Report Type: Spontaneous
  Country: US (occurrence: US)
  Receive Date: 20190513
  Receipt Date: 20190513
  Transmission Date: 20190711
  Serious: No
  Sender: FDA-Public Use
  Company Number: US-ASTRAZENECA-2019SE58412

PATIENT
  Age: 80 Year
  Sex: Female

DRUGS (2)
  1. ACALABRUTINIB. [Suspect]
     Active Substance: ACALABRUTINIB
     Dosage: UNKNOWN
     Route: 048
  2. VENETOCLAX. [Concomitant]
     Active Substance: VENETOCLAX

REACTIONS (1)
  - Skin burning sensation [Unknown]
